FAERS Safety Report 21047599 (Version 1)
Quarter: 2022Q3

REPORT INFORMATION
  Report Type: Spontaneous
  Country: CH (occurrence: CH)
  Receive Date: 20220706
  Receipt Date: 20220706
  Transmission Date: 20221026
  Serious: Yes (Hospitalization, Other)
  Sender: FDA-Public Use
  Company Number: None

PATIENT

DRUGS (22)
  1. SOTROVIMAB [Suspect]
     Active Substance: SOTROVIMAB
     Indication: Product used for unknown indication
     Dosage: 500 MG, TOTAL, (500 MG SINGLE INTRAVENOUS APPLICATION ON FEB 24, 2022)
     Route: 042
     Dates: start: 20220224, end: 20220224
  2. DIFLUCAN [Suspect]
     Active Substance: FLUCONAZOLE
     Indication: Product used for unknown indication
     Dosage: 400 MG, QD
     Route: 042
     Dates: start: 20220218, end: 20220220
  3. TAXOL [Suspect]
     Active Substance: PACLITAXEL
     Indication: Product used for unknown indication
     Dosage: 100 MG, CYC (CYCLICALLY)
     Route: 042
     Dates: start: 20220112, end: 20220210
  4. CARBOPLATIN [Suspect]
     Active Substance: CARBOPLATIN
     Indication: Product used for unknown indication
     Dosage: 180 MG, CYC (APPLICATION CYCLICALLY)
     Route: 042
     Dates: start: 20220112, end: 20220210
  5. NOVALGIN (METAMIZOLE SODIUM) [Suspect]
     Active Substance: METAMIZOLE SODIUM
     Indication: Product used for unknown indication
     Dosage: 1 DF, (DROPS IF REQUIRED 02/19/2022 TO 03/03/2022)
     Route: 048
     Dates: start: 20220219, end: 20220303
  6. DAFALGAN [Suspect]
     Active Substance: ACETAMINOPHEN
     Indication: Product used for unknown indication
     Dosage: 1 DF, (IN RESERVE IF NEEDED FROM 02/18/2022 TO 03/06/2022)
     Route: 048
     Dates: start: 20220218, end: 20220306
  7. OXYCODONE HYDROCHLORIDE [Suspect]
     Active Substance: OXYCODONE HYDROCHLORIDE
     Indication: Product used for unknown indication
     Dosage: 5 MG, (5 MG IN RESERVE ORAL INTAKE FROM 02/17/2022 TO 03/01/2022)
     Route: 048
     Dates: start: 20220217, end: 20220301
  8. NALOXONE HYDROCHLORIDE\OXYCODONE HYDROCHLORIDE [Suspect]
     Active Substance: NALOXONE HYDROCHLORIDE\OXYCODONE HYDROCHLORIDE
     Indication: Product used for unknown indication
     Dosage: 1 DF, BID, (5 / 2.5 MG 1-0-1 ORAL INTAKE FROM 02/18/20)
     Route: 048
     Dates: start: 20220218, end: 20220225
  9. ESOMEPRAZOLE [Concomitant]
     Active Substance: ESOMEPRAZOLE
     Indication: Product used for unknown indication
     Dosage: 40 MG, QD, ( 1-0-0 BIS 17.02.2022)
     Route: 048
     Dates: end: 20220217
  10. PANTOPRAZOLE SODIUM [Concomitant]
     Active Substance: PANTOPRAZOLE SODIUM
     Indication: Product used for unknown indication
     Dosage: 40 MG, QD, (1-0-0 FROM FEB 24TH UNTIL FURTHER NOTICE)
     Route: 048
     Dates: start: 20220224
  11. DEXAMETHASONE [Concomitant]
     Active Substance: DEXAMETHASONE
     Indication: Product used for unknown indication
     Dosage: 6 MG, QD, ( 1-0-0 FROM FEB 25TH, 2022 TO MAR7TH, 2022, THEN TAPER OFF)
     Route: 048
     Dates: start: 20220225, end: 20220307
  12. ROSUVASTATIN [Concomitant]
     Active Substance: ROSUVASTATIN
     Indication: Product used for unknown indication
     Dosage: 10 MG, QD, ( 1-0-0 UNTIL FURTHER NOTICE)
     Route: 048
  13. ASPIRIN [Concomitant]
     Active Substance: ASPIRIN
     Indication: Product used for unknown indication
     Dosage: 100 MG, QD, (1-0-0 UNTIL 07.03.2022)
     Route: 048
     Dates: end: 20220307
  14. ALLOPURINOL [Concomitant]
     Active Substance: ALLOPURINOL
     Indication: Product used for unknown indication
     Dosage: 100 MG, QD, (1-0-0, UNTIL FURTHER NOTICE)
     Route: 048
  15. CANDESARTAN [Concomitant]
     Active Substance: CANDESARTAN
     Indication: Product used for unknown indication
     Dosage: 12 MG, QD, (8MG 1.5-0-0 UNTIL 02/17/2022, THEN FROM 02/27/2022 UNTIL 03/01/2022
     Route: 048
     Dates: end: 20220217
  16. CANDESARTAN [Concomitant]
     Active Substance: CANDESARTAN
     Dosage: 12 MG, QD, (1.5-0-0 UNTIL 02/17/2022, THEN FROM 02/27/2022 UNTIL 03/01/2022)
     Route: 048
     Dates: start: 20220227, end: 20220301
  17. CANDESARTAN [Concomitant]
     Active Substance: CANDESARTAN
     Dosage: 4 MG, QD, (1.5-0-0 UNTIL 02/17/2022, THEN FROM 02/27/2022 UNTIL 03/01/2022)
     Route: 048
     Dates: start: 20220308, end: 20220313
  18. VANCOCIN [Concomitant]
     Active Substance: VANCOMYCIN HYDROCHLORIDE
     Indication: Product used for unknown indication
     Dosage: 1 DF, (03/01/2022 TO 03/08/2022)
     Route: 042
     Dates: start: 20220301, end: 20220308
  19. DUOFER [Concomitant]
     Indication: Product used for unknown indication
     Dosage: 300 MG, QD, (1-0-0 UNTIL 02/17/2022)
     Route: 048
     Dates: end: 20220217
  20. POLYETHYLENE GLYCOL 400 [Concomitant]
     Active Substance: POLYETHYLENE GLYCOL 400
     Indication: Product used for unknown indication
     Dosage: 10 G, (1-0-1 FROM 02/22/2022 UNTIL FURTHER NOTICE)
     Route: 048
     Dates: start: 20220222
  21. THIAMINE HYDROCHLORIDE [Concomitant]
     Active Substance: THIAMINE HYDROCHLORIDE
     Indication: Product used for unknown indication
     Dosage: 300 MG, QD, (1-0-0 AB 19.02.2022 BIS AM 02.03.2022)
     Route: 048
     Dates: start: 20220219, end: 20220302
  22. ENOXAPARIN SODIUM [Concomitant]
     Active Substance: ENOXAPARIN SODIUM
     Indication: Product used for unknown indication
     Dosage: 40 MG, QD, (0-0-1 FROM 02/17/2022 TO 03/08/2022 THEN CHANGE...)
     Route: 058
     Dates: start: 20220217, end: 20220308

REACTIONS (3)
  - Liver disorder [Recovered/Resolved]
  - Transaminases increased [Recovered/Resolved]
  - Organising pneumonia [Recovering/Resolving]

NARRATIVE: CASE EVENT DATE: 20220226
